FAERS Safety Report 16197403 (Version 4)
Quarter: 2019Q4

REPORT INFORMATION
  Report Type: Spontaneous
  Country: BR (occurrence: BR)
  Receive Date: 20190415
  Receipt Date: 20191209
  Transmission Date: 20200122
  Serious: Yes (Hospitalization, Other)
  Sender: FDA-Public Use
  Company Number: BR-GLAXOSMITHKLINE-BR2018GSK226328

PATIENT
  Sex: Female
  Weight: 60 kg

DRUGS (4)
  1. SPIRIVA [Suspect]
     Active Substance: TIOTROPIUM BROMIDE MONOHYDRATE
     Indication: PRODUCT USED FOR UNKNOWN INDICATION
     Dosage: UNK
  2. PREDNISONE. [Suspect]
     Active Substance: PREDNISONE
     Indication: PRODUCT USED FOR UNKNOWN INDICATION
     Dosage: 20 MG, Z
  3. ALENIA  (BUDESONIDE AND FORMOTEROL) [Suspect]
     Active Substance: BUDESONIDE\FORMOTEROL FUMARATE
     Indication: PRODUCT USED FOR UNKNOWN INDICATION
     Dosage: UNK
  4. NUCALA [Suspect]
     Active Substance: MEPOLIZUMAB
     Indication: ASTHMA
     Dosage: 100 MG, Z, MONTHLY
     Dates: start: 20181029

REACTIONS (12)
  - Circumstance or information capable of leading to medication error [Not Recovered/Not Resolved]
  - Fatigue [Not Recovered/Not Resolved]
  - Vomiting [Recovered/Resolved]
  - Pneumonia [Unknown]
  - Gait disturbance [Unknown]
  - Cough [Not Recovered/Not Resolved]
  - Oxygen saturation decreased [Recovered/Resolved]
  - Back pain [Recovered/Resolved]
  - Asthmatic crisis [Unknown]
  - Dyspnoea [Not Recovered/Not Resolved]
  - Product dose omission [Unknown]
  - Cholelithiasis [Recovered/Resolved]
